FAERS Safety Report 24643867 (Version 1)
Quarter: 2024Q4

REPORT INFORMATION
  Report Type: Spontaneous
  Country: US (occurrence: US)
  Receive Date: 20241120
  Receipt Date: 20241120
  Transmission Date: 20250115
  Serious: No
  Sender: Day One Biopharmaceuticals
  Company Number: US-Day One Biopharmaceuticals Inc.-2024US000493

PATIENT

DRUGS (2)
  1. OJEMDA [Suspect]
     Active Substance: TOVORAFENIB
     Indication: Product used for unknown indication
     Dosage: UNK
     Route: 065
  2. OJEMDA [Suspect]
     Active Substance: TOVORAFENIB
     Dosage: 280 MG/M2
     Route: 065

REACTIONS (1)
  - Ephelides [Unknown]
